FAERS Safety Report 16061514 (Version 1)
Quarter: 2019Q1

REPORT INFORMATION
  Report Type: Spontaneous
  Country: US (occurrence: US)
  Receive Date: 20190312
  Receipt Date: 20190312
  Transmission Date: 20190418
  Serious: No
  Sender: FDA-Public Use
  Company Number: US-ROCHE-2228629

PATIENT
  Age: 71 Year
  Sex: Female

DRUGS (1)
  1. AVASTIN [Suspect]
     Active Substance: BEVACIZUMAB
     Indication: OVARIAN CANCER
     Dosage: PATIENT IS AT THE BEGINNING OF HER 5TH CYCLE
     Route: 065
     Dates: start: 20180910

REACTIONS (1)
  - Protein urine present [Recovered/Resolved]

NARRATIVE: CASE EVENT DATE: 201810
